FAERS Safety Report 9442696 (Version 1)
Quarter: 2013Q3

REPORT INFORMATION
  Report Type: Spontaneous
  Country: IT (occurrence: IT)
  Receive Date: 20130806
  Receipt Date: 20130806
  Transmission Date: 20140515
  Serious: Yes (Hospitalization)
  Sender: FDA-Public Use
  Company Number: PHHY2013IT082347

PATIENT
  Sex: Female

DRUGS (6)
  1. AMOXICILLIN [Suspect]
     Dosage: 1 DF, QD
     Route: 048
     Dates: start: 20130725, end: 20130725
  2. MEDIPO [Concomitant]
  3. DEPAKIN [Concomitant]
  4. ESAPENT [Concomitant]
  5. SYCREST [Concomitant]
  6. DALMADORM [Concomitant]

REACTIONS (5)
  - Hypotension [Recovered/Resolved]
  - Abdominal pain upper [Recovered/Resolved]
  - Pruritus [Recovered/Resolved]
  - Face oedema [Recovered/Resolved]
  - Nausea [Recovered/Resolved]
